FAERS Safety Report 6403165-5 (Version None)
Quarter: 2009Q4

REPORT INFORMATION
  Report Type: 
  Country: None (occurrence: None)
  Receive Date: 20091016
  Receipt Date: 20091006
  Transmission Date: 20100525
  Serious: Yes (Hospitalization)
  Sender: FDA-Public Use
  Company Number: AU-JNJFOC-20091004536

PATIENT
  Sex: Female

DRUGS (2)
  1. IBUPROFEN [Suspect]
     Indication: MYALGIA
  2. REMICADE [Concomitant]
     Indication: CROHN'S DISEASE
     Dosage: LAST INFUSION ON 28-AUG-2009
     Route: 042

REACTIONS (1)
  - OESOPHAGITIS [None]
